FAERS Safety Report 8318869-7 (Version None)
Quarter: 2012Q2

REPORT INFORMATION
  Report Type: 
  Country: None (occurrence: None)
  Receive Date: 20120426
  Receipt Date: 20120426
  Transmission Date: 20120825
  Serious: Yes (Hospitalization)
  Sender: FDA-Public Use
  Company Number: None

PATIENT
  Age: 55 Year
  Sex: Male
  Weight: 72.5755 kg

DRUGS (4)
  1. TAMSULOSIN HCL [Suspect]
     Dosage: 1 CAPSULE 1 DAY FEB 18 - FEB 22
  2. TAMSULOSIN HCL [Suspect]
     Indication: PROSTATOMEGALY
     Dosage: 1CAPSULE 1DAY
     Dates: start: 20111201
  3. TAMSULOSIN HCL [Suspect]
     Indication: PROSTATOMEGALY
     Dosage: 1CAPSULE 1DAY
     Dates: start: 20120101
  4. TAMSULOSIN HCL [Suspect]
     Indication: PROSTATOMEGALY
     Dosage: 1CAPSULE 1DAY
     Dates: start: 20120201

REACTIONS (8)
  - RETROGRADE EJACULATION [None]
  - VISION BLURRED [None]
  - PRURITUS [None]
  - ANXIETY [None]
  - ABDOMINAL DISCOMFORT [None]
  - URTICARIA [None]
  - DYSPNOEA [None]
  - PRODUCT SUBSTITUTION ISSUE [None]
